FAERS Safety Report 4372158-4 (Version None)
Quarter: 2004Q2

REPORT INFORMATION
  Report Type: 
  Country: None (occurrence: None)
  Receive Date: 20040602
  Receipt Date: 20040525
  Transmission Date: 20050107
  Serious: Yes (Hospitalization)
  Sender: FDA-Public Use
  Company Number: 2004PK00924

PATIENT
  Age: 49 Year
  Sex: Female
  Weight: 88 kg

DRUGS (12)
  1. ZESTRIL [Suspect]
     Indication: SECONDARY HYPERTENSION
     Dosage: 20 MG DAILY PO
     Route: 048
  2. IMUREK [Suspect]
     Indication: RENAL TRANSPLANT
     Dosage: 25 MG TO 50 MG
     Dates: start: 20040401, end: 20040420
  3. CARDURA [Concomitant]
  4. ADALAT [Concomitant]
  5. ASPIRIN CARDIO [Concomitant]
  6. BELOC ZOK [Concomitant]
  7. PANTOZOL [Concomitant]
  8. SANDIMMUNE [Concomitant]
  9. TORSEMIDE [Concomitant]
  10. RECORMON [Concomitant]
  11. PREDNISONE [Concomitant]
  12. VALTREX [Concomitant]

REACTIONS (2)
  - PANCYTOPENIA [None]
  - PYREXIA [None]
